FAERS Safety Report 7178001-2 (Version None)
Quarter: 2010Q4

REPORT INFORMATION
  Report Type: 
  Country: None (occurrence: None)
  Receive Date: 20101220
  Receipt Date: 20101208
  Transmission Date: 20110411
  Serious: Yes (Hospitalization, Other)
  Sender: FDA-Public Use
  Company Number: FR-ACTELION-A-CH2010-42435

PATIENT
  Sex: Female

DRUGS (4)
  1. BOSENTAN TABLET 125 MG DUO EU [Suspect]
     Indication: PULMONARY ARTERIAL HYPERTENSION
     Dosage: 125 MG, BID
     Route: 048
     Dates: start: 20100701, end: 20101206
  2. BOSENTAN TABLET 125 MG DUO EU [Suspect]
     Dosage: 62.5 MG, BID
     Route: 048
     Dates: start: 20100528, end: 20100630
  3. EUPANTOL [Concomitant]
  4. OFLOCET [Concomitant]

REACTIONS (11)
  - ALANINE AMINOTRANSFERASE INCREASED [None]
  - BLOOD ALKALINE PHOSPHATASE INCREASED [None]
  - CONCOMITANT DISEASE AGGRAVATED [None]
  - EXTREMITY NECROSIS [None]
  - GAMMA-GLUTAMYLTRANSFERASE INCREASED [None]
  - LIVER FUNCTION TEST ABNORMAL [None]
  - LUNG INFECTION [None]
  - PERIPHERAL ISCHAEMIA [None]
  - PULMONARY FIBROSIS [None]
  - RENAL FAILURE ACUTE [None]
  - RESPIRATORY FAILURE [None]
